FAERS Safety Report 9416642 (Version 1)
Quarter: 2013Q3

REPORT INFORMATION
  Report Type: Spontaneous
  Country: ES (occurrence: None)
  Receive Date: 20130722
  Receipt Date: 20130722
  Transmission Date: 20140515
  Serious: Yes (Hospitalization)
  Sender: FDA-Public Use
  Company Number: NSR_01198_2013

PATIENT
  Age: 81 Year
  Sex: Female

DRUGS (8)
  1. TRAMADOL (TRAMADOL) [Suspect]
     Indication: OSTEOARTHRITIS
  2. IBUPROFEN [Concomitant]
  3. SERTRALINE [Concomitant]
  4. OMEPRAZOLE [Concomitant]
  5. CALCOI, CARBONATE W/COLECALCIFEROL [Concomitant]
  6. CODEINE [Concomitant]
  7. ACETAMINOPHNE/HYDROCODONE [Concomitant]
  8. IRON [Concomitant]

REACTIONS (3)
  - Persecutory delusion [None]
  - Hallucinations, mixed [None]
  - Sleep disorder [None]
